FAERS Safety Report 5096893-8 (Version None)
Quarter: 2006Q3

REPORT INFORMATION
  Report Type: 
  Country: None (occurrence: None)
  Receive Date: 20060901
  Receipt Date: 20060901
  Transmission Date: 20061208
  Serious: Yes (Hospitalization)
  Sender: FDA-Public Use
  Company Number: None

PATIENT
  Sex: Female
  Weight: 52.1637 kg

DRUGS (1)
  1. TYGACIL [Suspect]
     Indication: ABSCESS INTESTINAL
     Dosage: 50MG  Q 12 HOURS  IV
     Route: 042
     Dates: start: 20060727, end: 20060803

REACTIONS (4)
  - BLOOD BILIRUBIN INCREASED [None]
  - LIVER FUNCTION TEST ABNORMAL [None]
  - TRANSAMINASES INCREASED [None]
  - WHITE BLOOD CELL COUNT INCREASED [None]
